FAERS Safety Report 9571657 (Version 1)
Quarter: 2013Q4

REPORT INFORMATION
  Report Type: Spontaneous
  Country: US (occurrence: US)
  Receive Date: 20131001
  Receipt Date: 20131001
  Transmission Date: 20140711
  Serious: No
  Sender: FDA-Public Use
  Company Number: US-BIOGENIDEC-2013BI065431

PATIENT
  Age: 42 Year
  Sex: Female

DRUGS (12)
  1. TECFIDERA [Suspect]
     Indication: MULTIPLE SCLEROSIS
     Route: 048
     Dates: start: 20130425, end: 20130702
  2. AZITHROMYCIN [Concomitant]
     Dates: start: 20130514
  3. CHERATUSSIN AC SYRUP [Concomitant]
     Dates: start: 20130514
  4. GABAPENTIN [Concomitant]
     Dates: start: 20130318
  5. COPAXONE [Concomitant]
     Dates: start: 20110418
  6. VITAMIN E [Concomitant]
  7. LEXAPRO [Concomitant]
  8. ADVIL [Concomitant]
  9. VITAMIN D [Concomitant]
  10. EVE PAM OIL CAP (PRESUMED TO BE EVENING PRIMROSE OIL) [Concomitant]
  11. CALCIUM [Concomitant]
  12. OMEGA 3 [Concomitant]

REACTIONS (2)
  - Flushing [Unknown]
  - Abdominal discomfort [Unknown]
